FAERS Safety Report 20084224 (Version 2)
Quarter: 2021Q4

REPORT INFORMATION
  Report Type: Spontaneous
  Country: JP (occurrence: JP)
  Receive Date: 20211118
  Receipt Date: 20211202
  Transmission Date: 20220304
  Serious: Yes (Other)
  Sender: FDA-Public Use
  Company Number: JP-002147023-NVSJ2021JP018431

PATIENT
  Age: 83 Year
  Sex: Male

DRUGS (3)
  1. LUCENTIS [Suspect]
     Active Substance: RANIBIZUMAB
     Indication: Age-related macular degeneration
     Dosage: UNK
     Route: 050
     Dates: start: 20210128, end: 20210128
  2. LUCENTIS [Suspect]
     Active Substance: RANIBIZUMAB
     Dosage: UNK
     Route: 050
     Dates: start: 20210225, end: 20210225
  3. LUCENTIS [Suspect]
     Active Substance: RANIBIZUMAB
     Route: 050

REACTIONS (7)
  - Chorioretinal atrophy [Recovering/Resolving]
  - Retinal haemorrhage [Recovering/Resolving]
  - Detachment of retinal pigment epithelium [Recovering/Resolving]
  - Visual acuity reduced [Unknown]
  - Concomitant disease aggravated [Recovering/Resolving]
  - Age-related macular degeneration [Unknown]
  - Disease progression [Unknown]
